FAERS Safety Report 11528200 (Version 1)
Quarter: 2015Q3

REPORT INFORMATION
  Report Type: Spontaneous
  Country: IT (occurrence: IT)
  Receive Date: 20150921
  Receipt Date: 20150921
  Transmission Date: 20151125
  Serious: Yes (Other)
  Sender: FDA-Public Use
  Company Number: IT-ROCHE-1635595

PATIENT
  Age: 53 Year
  Sex: Female
  Weight: 86 kg

DRUGS (5)
  1. MABTHERA [Suspect]
     Active Substance: RITUXIMAB
     Indication: RHEUMATOID ARTHRITIS
     Dosage: 1 X 500 MG 50 ML VIAL
     Route: 042
     Dates: start: 20150902, end: 20150902
  2. PARACETAMOL [Concomitant]
     Active Substance: ACETAMINOPHEN
     Dosage: 1 TABLET
     Route: 048
  3. BENTELAN [Concomitant]
     Active Substance: BETAMETHASONE SODIUM PHOSPHATE
     Indication: PREMEDICATION
     Route: 042
  4. RANITIDINE [Concomitant]
     Active Substance: RANITIDINE\RANITIDINE HYDROCHLORIDE
     Indication: PREMEDICATION
     Dosage: 50 MG VIAL IN 100 CC OF SALINE SOLUTION
     Route: 065
  5. CHLORPHENAMINE [Concomitant]
     Active Substance: CHLORPHENIRAMINE MALEATE
     Indication: PREMEDICATION
     Dosage: 10 MG INTRAVENOUS IN 100 CC OF SALINE SOLUTION
     Route: 042

REACTIONS (4)
  - Paraesthesia [Recovered/Resolved]
  - Type IV hypersensitivity reaction [Recovered/Resolved]
  - Obstructive airways disorder [Recovered/Resolved]
  - Pharyngeal oedema [Recovered/Resolved]

NARRATIVE: CASE EVENT DATE: 20150902
